FAERS Safety Report 4285297-3 (Version None)
Quarter: 2004Q1

REPORT INFORMATION
  Report Type: 
  Country: None (occurrence: None)
  Receive Date: 20040202
  Receipt Date: 20040123
  Transmission Date: 20041129
  Serious: Yes (Death, Hospitalization, Other)
  Sender: FDA-Public Use
  Company Number: A206685

PATIENT
  Age: 61 Year
  Sex: Male

DRUGS (8)
  1. SULPERAZON (CEFOPERAZONE, SULBACTAM) [Suspect]
     Indication: RENAL DISORDER
     Dosage: 2 GRAM (BID), INTRAVENOUS
     Route: 042
     Dates: start: 20020227, end: 20020306
  2. SULPERAZON (CEFOPERAZONE, SULBACTAM) [Suspect]
     Indication: SEPSIS
     Dosage: 2 GRAM (BID), INTRAVENOUS
     Route: 042
     Dates: start: 20020227, end: 20020306
  3. GABEXATE MESILATE (GABEXATE MESILATE) [Suspect]
     Indication: ILL-DEFINED DISORDER
     Dates: start: 20020306
  4. FAMOTIDINE [Suspect]
     Indication: ILL-DEFINED DISORDER
     Dates: start: 20020314
  5. CIPROFLOXACIN [Suspect]
     Indication: ILL-DEFINED DISORDER
     Dates: start: 20020316
  6. SODIUM BICARBONATE IN PLASTIC CONTAINER [Concomitant]
  7. OMEPRAZOLE [Concomitant]
  8. DALTEPARIN SODIUM (HEPARIN-FRACTION, SODIUM SALT) [Concomitant]

REACTIONS (11)
  - BLOOD CREATININE INCREASED [None]
  - BLOOD UREA INCREASED [None]
  - DISSEMINATED INTRAVASCULAR COAGULATION [None]
  - FAECES DISCOLOURED [None]
  - HAEMOGLOBIN DECREASED [None]
  - MULTI-ORGAN FAILURE [None]
  - NECROSIS [None]
  - NEUTROPHIL PERCENTAGE DECREASED [None]
  - PLATELET COUNT DECREASED [None]
  - TOXIC EPIDERMAL NECROLYSIS [None]
  - WHITE BLOOD CELL COUNT DECREASED [None]
